FAERS Safety Report 11326064 (Version 2)
Quarter: 2018Q4

REPORT INFORMATION
  Report Type: Spontaneous
  Country: GR (occurrence: GR)
  Receive Date: 20150731
  Receipt Date: 20181022
  Transmission Date: 20190204
  Serious: Yes (Hospitalization)
  Sender: FDA-Public Use
  Company Number: GR-ACCORD-032737

PATIENT
  Age: 44 Year
  Sex: Female

DRUGS (2)
  1. MYCOPHENOLIC ACID. [Suspect]
     Active Substance: MYCOPHENOLIC ACID
     Indication: SYSTEMIC LUPUS ERYTHEMATOSUS
     Dosage: 500 MG 1X2
  2. METHYLPREDNISOLONE. [Suspect]
     Active Substance: METHYLPREDNISOLONE
     Indication: CHRONIC KIDNEY DISEASE
     Dosage: 8 MG X 1

REACTIONS (7)
  - Lymphopenia [Recovering/Resolving]
  - Renal impairment [Recovering/Resolving]
  - Lung infection [Recovering/Resolving]
  - Pneumonia [Recovering/Resolving]
  - Rales [Recovering/Resolving]
  - Thrombocytopenia [Recovering/Resolving]
  - Brain abscess [Recovering/Resolving]
